FAERS Safety Report 23950108 (Version 1)
Quarter: 2024Q2

REPORT INFORMATION
  Report Type: Spontaneous
  Country: US (occurrence: None)
  Receive Date: 20240606
  Receipt Date: 20240606
  Transmission Date: 20240715
  Serious: Yes (Life-Threatening, Hospitalization, Disabling)
  Sender: FDA-Public Use
  Company Number: None

PATIENT
  Age: 76 Year
  Sex: Female
  Weight: 96.75 kg

DRUGS (2)
  1. LEQEMBI [Suspect]
     Active Substance: LECANEMAB-IRMB
     Indication: Dementia Alzheimer^s type
     Dosage: OTHER FREQUENCY : Q2 WEEKS;?
     Dates: start: 20240330, end: 20240515
  2. LEQEMBI [Suspect]
     Active Substance: LECANEMAB-IRMB
     Indication: Positron emission tomogram

REACTIONS (3)
  - Cerebral haematoma [None]
  - Cerebral mass effect [None]
  - Brain oedema [None]

NARRATIVE: CASE EVENT DATE: 20240516
